FAERS Safety Report 20705438 (Version 3)
Quarter: 2022Q2

REPORT INFORMATION
  Report Type: Spontaneous
  Country: ES (occurrence: ES)
  Receive Date: 20220413
  Receipt Date: 20220614
  Transmission Date: 20220721
  Serious: Yes (Death, Hospitalization, Other)
  Sender: FDA-Public Use
  Company Number: ES-ALXN-A202204456

PATIENT
  Age: 70 Year
  Sex: Male
  Weight: 69.5 kg

DRUGS (1)
  1. SOLIRIS [Suspect]
     Active Substance: ECULIZUMAB
     Indication: Paroxysmal nocturnal haemoglobinuria
     Dosage: UNK
     Route: 065
     Dates: start: 202003, end: 20211028

REACTIONS (5)
  - Multiple organ dysfunction syndrome [Fatal]
  - Enterobacter sepsis [Fatal]
  - Bone marrow failure [Unknown]
  - Disease progression [Unknown]
  - Drug ineffective [Unknown]
